FAERS Safety Report 20534422 (Version 1)
Quarter: 2022Q1

REPORT INFORMATION
  Report Type: Other
  Country: US (occurrence: None)
  Receive Date: 20220302
  Receipt Date: 20220302
  Transmission Date: 20220423
  Serious: No
  Sender: FDA-Public Use
  Company Number: US-ROCHE-3028969

PATIENT
  Sex: Male

DRUGS (1)
  1. OCREVUS [Suspect]
     Active Substance: OCRELIZUMAB
     Indication: Primary progressive multiple sclerosis
     Dosage: YES?SUBSEQUENT DOSE: INFUSE 600 MG IV EVERY 26 WEEKS?DATE OF TREATMENT: 2021-07-21, 2021-01-20,2020-
     Route: 042
     Dates: start: 20200123

REACTIONS (1)
  - COVID-19 [Unknown]
